FAERS Safety Report 21177599 (Version 3)
Quarter: 2023Q1

REPORT INFORMATION
  Report Type: Spontaneous
  Country: US (occurrence: US)
  Receive Date: 20220805
  Receipt Date: 20230214
  Transmission Date: 20230418
  Serious: No
  Sender: FDA-Public Use
  Company Number: US-ALLERGAN-2224972US

PATIENT
  Sex: Female
  Weight: 150 kg

DRUGS (8)
  1. VUITY [Suspect]
     Active Substance: PILOCARPINE HYDROCHLORIDE
     Indication: Presbyopia
     Dosage: 1 GTT, QD
     Route: 047
     Dates: start: 20220711
  2. PROZAC [Concomitant]
     Active Substance: FLUOXETINE HYDROCHLORIDE
     Indication: Depression
     Dosage: 40 MG, QD
     Route: 048
     Dates: start: 199510
  3. OSSOPAN [DURAPATITE] [Concomitant]
     Indication: Supplementation therapy
     Dosage: 25 MG, QD
     Route: 048
     Dates: start: 202002
  4. VITAMIN K2 + D3 [COLECALCIFEROL;MENAQUINONE] [Concomitant]
     Indication: Supplementation therapy
     Dosage: 125 ?G, QD
     Route: 048
     Dates: start: 202002
  5. VITAMIN B12 [Concomitant]
     Active Substance: CYANOCOBALAMIN
     Indication: Headache
     Dosage: 400 MG, QD
     Route: 048
     Dates: start: 202002
  6. COENZYME Q10 [Concomitant]
     Active Substance: DIETARY SUPPLEMENT\UBIDECARENONE
     Indication: Cardiac disorder
     Dosage: 100 MG; 1,2 DAILY
     Route: 048
  7. CENTRUM SILVER [ASCORBIC ACID;CALCIUM;MINERALS NOS;RETINOL;TOCOPHERYL [Concomitant]
     Indication: Nutritional supplementation
     Dosage: UNK, QD
     Route: 048
     Dates: start: 20110721
  8. PROBIOTICS NOS [Concomitant]
     Active Substance: PROBIOTICS NOS
     Indication: Digestive enzyme abnormal
     Dosage: 170 MG, QD
     Route: 048
     Dates: start: 201302

REACTIONS (4)
  - Vitreous detachment [Unknown]
  - Vitreous floaters [Not Recovered/Not Resolved]
  - Photopsia [Not Recovered/Not Resolved]
  - Vision blurred [Not Recovered/Not Resolved]

NARRATIVE: CASE EVENT DATE: 20220717
